FAERS Safety Report 10668650 (Version 2)
Quarter: 2015Q1

REPORT INFORMATION
  Report Type: Spontaneous
  Country: GB (occurrence: GB)
  Receive Date: 20141222
  Receipt Date: 20150215
  Transmission Date: 20150720
  Serious: Yes (Other)
  Sender: FDA-Public Use
  Company Number: GB-WATSON-2014-27126

PATIENT
  Age: 74 Year
  Sex: Female
  Weight: 55 kg

DRUGS (15)
  1. BECONASE AQ [Concomitant]
     Active Substance: BECLOMETHASONE DIPROPIONATE MONOHYDRATE
     Indication: SEASONAL ALLERGY
     Dosage: UNK
     Route: 045
     Dates: end: 201410
  2. LIPITOR [Concomitant]
     Active Substance: ATORVASTATIN CALCIUM
     Indication: BLOOD CHOLESTEROL INCREASED
     Dosage: 10 MG, DAILY
     Route: 048
     Dates: start: 2013
  3. LORATADINE. [Concomitant]
     Active Substance: LORATADINE
     Indication: RHINITIS
     Dosage: 10 MG, PRN
     Route: 048
     Dates: end: 201410
  4. OMEPRAZOLE (UNKNOWN) [Suspect]
     Active Substance: OMEPRAZOLE
     Dosage: 10 MG, PRN; REDUCED TO 10 MG DAILY AS SYMPTOMS IMPROVED
     Route: 048
  5. STUGERON [Concomitant]
     Active Substance: CINNARIZINE
     Indication: MOTION SICKNESS
     Dosage: 15 MG, UNK
     Route: 048
     Dates: start: 2011
  6. MEBEVERINE [Concomitant]
     Active Substance: MEBEVERINE
     Indication: ABDOMINAL PAIN UPPER
     Dosage: 135 MG, TID
     Route: 048
  7. LORATADINE. [Concomitant]
     Active Substance: LORATADINE
     Indication: SEASONAL ALLERGY
  8. OMEPRAZOLE (UNKNOWN) [Suspect]
     Active Substance: OMEPRAZOLE
     Indication: GASTROOESOPHAGEAL REFLUX DISEASE
     Dosage: 20 MG, QAM/QPM
     Route: 048
  9. COLOFAC                            /00139402/ [Concomitant]
     Indication: IRRITABLE BOWEL SYNDROME
     Dosage: 135 MG, TID
     Route: 048
     Dates: start: 2010
  10. VITAMIN D                          /00107901/ [Concomitant]
     Active Substance: ERGOCALCIFEROL
     Indication: BONE DISORDER
     Dosage: 10 MG, DAILY
     Route: 048
     Dates: start: 2013
  11. ONDANSETRON [Concomitant]
     Active Substance: ONDANSETRON
     Indication: NAUSEA
     Dosage: 4 MG, BID (OCCASIONALLY)
     Route: 048
     Dates: start: 2014
  12. STEMETIL                           /00013301/ [Concomitant]
     Indication: MENIERE^S DISEASE
     Dosage: 5 MG, UNK
     Route: 048
  13. VISCOTEARS [Concomitant]
     Active Substance: CARBOMER
     Indication: DRY EYE
     Dosage: UNK; 3 TO 4 DAILY
     Route: 047
  14. OMEPRAZOLE. [Suspect]
     Active Substance: OMEPRAZOLE
     Indication: GASTROOESOPHAGEAL REFLUX DISEASE
     Dosage: 20 MG, DAILY
     Route: 048
     Dates: start: 201107
  15. SUMATRIPTAN. [Concomitant]
     Active Substance: SUMATRIPTAN
     Indication: MIGRAINE
     Dosage: 100 MG, PRN
     Route: 048

REACTIONS (4)
  - Dysgeusia [Unknown]
  - Polyp [Not Recovered/Not Resolved]
  - Gastritis [Not Recovered/Not Resolved]
  - Tongue discolouration [Unknown]

NARRATIVE: CASE EVENT DATE: 2014
